FAERS Safety Report 6367323-0 (Version None)
Quarter: 2009Q3

REPORT INFORMATION
  Report Type: 
  Country: None (occurrence: None)
  Receive Date: 20090921
  Receipt Date: 20090916
  Transmission Date: 20100115
  Serious: Yes (Death)
  Sender: FDA-Public Use
  Company Number: NL-SANOFI-SYNTHELABO-F01200900889

PATIENT

DRUGS (3)
  1. CAPECITABINE [Suspect]
     Route: 048
  2. BEVACIZUMAB [Suspect]
     Route: 041
  3. OXALIPLATIN [Suspect]
     Route: 041

REACTIONS (1)
  - ASCITES [None]
